FAERS Safety Report 21260640 (Version 3)
Quarter: 2022Q4

REPORT INFORMATION
  Report Type: Report from Study
  Country: DE (occurrence: DE)
  Receive Date: 20220826
  Receipt Date: 20221003
  Transmission Date: 20230112
  Serious: Yes (Death, Other)
  Sender: FDA-Public Use
  Company Number: DE-BRISTOL-MYERS SQUIBB COMPANY-2022-096331

PATIENT
  Age: 77 Year
  Sex: Female
  Weight: 83 kg

DRUGS (1)
  1. VIDAZA [Suspect]
     Active Substance: AZACITIDINE
     Indication: Chronic myeloid leukaemia
     Dosage: 200 MG ON 5 DAYS PER WEEK
     Route: 065
     Dates: start: 20140409, end: 20140614

REACTIONS (3)
  - Pneumonia [Fatal]
  - Pancytopenia [Fatal]
  - Weight decreased [Fatal]

NARRATIVE: CASE EVENT DATE: 20140622
